FAERS Safety Report 12469610 (Version 1)
Quarter: 2016Q2

REPORT INFORMATION
  Report Type: Spontaneous
  Country: JP (occurrence: JP)
  Receive Date: 20160615
  Receipt Date: 20160615
  Transmission Date: 20160815
  Serious: Yes (Life-Threatening, Other)
  Sender: FDA-Public Use
  Company Number: JP-009507513-1606JPN006471

PATIENT

DRUGS (1)
  1. BRIDION [Suspect]
     Active Substance: SUGAMMADEX
     Dosage: DAILY DOSAGE UNKNOWN
     Route: 042

REACTIONS (3)
  - Prinzmetal angina [Unknown]
  - Ventricular fibrillation [Unknown]
  - Blood pressure increased [Unknown]
